FAERS Safety Report 26083261 (Version 1)
Quarter: 2025Q4

REPORT INFORMATION
  Report Type: Report from Study
  Country: US (occurrence: US)
  Receive Date: 20251124
  Receipt Date: 20251124
  Transmission Date: 20260117
  Serious: No
  Sender: MALLINCKRODT
  Company Number: US-MALLINCKRODT-MNK202506899

PATIENT
  Sex: Female

DRUGS (1)
  1. CORTICOTROPIN [Suspect]
     Active Substance: CORTICOTROPIN
     Indication: Iridocyclitis
     Dosage: UNKNOWN

REACTIONS (7)
  - Taste disorder [Unknown]
  - Snoring [Unknown]
  - Swelling face [Not Recovered/Not Resolved]
  - Generalised oedema [Not Recovered/Not Resolved]
  - Swollen tongue [Unknown]
  - Fatigue [Unknown]
  - Rash [Unknown]
